FAERS Safety Report 11314627 (Version 12)
Quarter: 2018Q2

REPORT INFORMATION
  Report Type: Report from Study
  Country: CA (occurrence: CA)
  Receive Date: 20150727
  Receipt Date: 20180511
  Transmission Date: 20180711
  Serious: Yes (Death)
  Sender: FDA-Public Use
  Company Number: CA-ASTELLAS-2015US026440

PATIENT

DRUGS (1)
  1. ERLOTINIB [Suspect]
     Active Substance: ERLOTINIB
     Indication: SQUAMOUS CELL CARCINOMA OF LUNG
     Route: 048

REACTIONS (1)
  - Intestinal obstruction [Fatal]
